FAERS Safety Report 10747293 (Version 1)
Quarter: 2015Q1

REPORT INFORMATION
  Report Type: Other
  Country: IT (occurrence: IT)
  Receive Date: 20150129
  Receipt Date: 20150129
  Transmission Date: 20150721
  Serious: Yes (Death, Hospitalization)
  Sender: FDA-Public Use
  Company Number: IT-AUROBINDO-AUR-APL-2014-02336

PATIENT
  Age: 57 Year
  Sex: Female

DRUGS (5)
  1. KETOPROFENE [Suspect]
     Active Substance: KETOPROFEN
     Indication: ORTHODONTIC PROCEDURE
     Dosage: 1 DF,TOTAL,
     Route: 048
     Dates: start: 20140120, end: 20140120
  2. TRIATEC [Concomitant]
     Active Substance: RAMIPRIL
     Indication: PRODUCT USED FOR UNKNOWN INDICATION
     Dosage: 5 MG,UNK,
     Route: 048
  3. SOLDESAM [Concomitant]
     Active Substance: DEXAMETHASONE
     Indication: PRODUCT USED FOR UNKNOWN INDICATION
     Dosage: UNK
     Route: 065
  4. AMOXICILLIN. [Suspect]
     Active Substance: AMOXICILLIN
     Indication: ORTHODONTIC PROCEDURE
     Dosage: 1 DF,TOTAL,
     Route: 048
     Dates: start: 20140120, end: 20140120
  5. DIBASE [Concomitant]
     Active Substance: CHOLECALCIFEROL
     Indication: PRODUCT USED FOR UNKNOWN INDICATION
     Dosage: 2.5 ML,UNK,
     Route: 048

REACTIONS (3)
  - Chest pain [Recovered/Resolved]
  - Erythema [Recovered/Resolved]
  - Skin reaction [Recovered/Resolved]

NARRATIVE: CASE EVENT DATE: 20140120
